FAERS Safety Report 18870610 (Version 1)
Quarter: 2021Q1

REPORT INFORMATION
  Report Type: Spontaneous
  Country: US (occurrence: US)
  Receive Date: 20210209
  Receipt Date: 20210209
  Transmission Date: 20210420
  Serious: No
  Sender: FDA-Public Use
  Company Number: US-009507513-2102USA001731

PATIENT
  Age: 83 Year
  Sex: Female

DRUGS (2)
  1. ASMANEX [Suspect]
     Active Substance: MOMETASONE FUROATE
     Dosage: TWICE A DAY ONE PUFF
     Dates: start: 202012
  2. ASMANEX [Suspect]
     Active Substance: MOMETASONE FUROATE
     Dosage: TWICE A DAY ONE PUFF

REACTIONS (2)
  - No adverse event [Unknown]
  - Expired device used [Unknown]

NARRATIVE: CASE EVENT DATE: 202012
